FAERS Safety Report 8330604-5 (Version None)
Quarter: 2012Q2

REPORT INFORMATION
  Report Type: 
  Country: None (occurrence: None)
  Receive Date: 20120502
  Receipt Date: 20120405
  Transmission Date: 20120825
  Serious: No
  Sender: FDA-Public Use
  Company Number: US-AMGEN-USASP2012021808

PATIENT
  Sex: Female

DRUGS (4)
  1. TACLONEX [Concomitant]
     Dosage: UNK
  2. EXTRA STRENGTH TYLENOL [Concomitant]
     Dosage: UNK
  3. ENBREL [Suspect]
     Indication: PSORIATIC ARTHROPATHY
     Dosage: 50 MG, 2 TIMES/WK
     Dates: start: 20110101, end: 20120101
  4. AMLODIPINE [Concomitant]
     Dosage: UNK

REACTIONS (2)
  - UNEVALUABLE EVENT [None]
  - INFECTION [None]
